FAERS Safety Report 5797484-3 (Version None)
Quarter: 2008Q2

REPORT INFORMATION
  Report Type: 
  Country: None (occurrence: None)
  Receive Date: 20080630
  Receipt Date: 20080616
  Transmission Date: 20081010
  Serious: Yes (Hospitalization)
  Sender: FDA-Public Use
  Company Number: 2008AL007099

PATIENT
  Sex: Male

DRUGS (1)
  1. DIGOXIN [Suspect]
     Indication: CARDIAC DISORDER
     Dosage: 0.125MG
     Dates: start: 20030101

REACTIONS (7)
  - FATIGUE [None]
  - FEELING ABNORMAL [None]
  - HEADACHE [None]
  - MALAISE [None]
  - PACEMAKER GENERATED RHYTHM [None]
  - PALPITATIONS [None]
  - TREMOR [None]
